FAERS Safety Report 26212111 (Version 1)
Quarter: 2025Q4

REPORT INFORMATION
  Report Type: Spontaneous
  Country: None (occurrence: EG)
  Receive Date: 20251230
  Receipt Date: 20251230
  Transmission Date: 20260117
  Serious: Yes (Other)
  Sender: HIKMA
  Company Number: EG-HIKMA PHARMACEUTICALS-EG-H14001-25-13835

PATIENT
  Age: 65 Year
  Sex: Female
  Weight: 70 kg

DRUGS (4)
  1. PACLITAXEL [Suspect]
     Active Substance: PACLITAXEL
     Indication: Laryngeal mass
     Dosage: 128 MILLIGRAM, ON DAY 1, 8 AND 15 EVERY 21 DAYS
  2. PACLITAXEL [Suspect]
     Active Substance: PACLITAXEL
     Dosage: 128 MILLIGRAM, ON DAY 1, 8 AND 15 EVERY 21 DAYS, FOURTH CYCLE WEEK ONE
     Dates: start: 20251109
  3. CARBOPLATIN [Suspect]
     Active Substance: CARBOPLATIN
     Indication: Laryngeal mass
     Dosage: 750 MILLIGRAM, EVERY 21 DAYS
  4. CARBOPLATIN [Suspect]
     Active Substance: CARBOPLATIN
     Dosage: 750 MILLIGRAM, EVERY 21 DAYS, FOURTH CYCLE WEEK ONE
     Dates: start: 20251109

REACTIONS (3)
  - Bone pain [Recovered/Resolved]
  - Decreased appetite [Recovered/Resolved]
  - Thrombocytopenia [Recovering/Resolving]

NARRATIVE: CASE EVENT DATE: 20251111
